FAERS Safety Report 25719846 (Version 1)
Quarter: 2025Q3

REPORT INFORMATION
  Report Type: 
  Country: CN (occurrence: CN)
  Receive Date: 20250825
  Receipt Date: 20250825
  Transmission Date: 20251020
  Serious: Yes (Hospitalization, Other)
  Sender: JIANGSU HANSOH PHARMACEUTICAL GROUP CO., LTD.
  Company Number: CN-Hansoh-20252190015454

PATIENT
  Age: 59 Year
  Sex: Male

DRUGS (2)
  1. PEMETREXED [Suspect]
     Active Substance: PEMETREXED
     Indication: Lung neoplasm malignant
     Dosage: 0.85 G, QD
     Route: 041
     Dates: start: 20250817, end: 20250817
  2. CISPLATIN [Suspect]
     Active Substance: CISPLATIN
     Indication: Lung neoplasm malignant
     Dosage: 30 MG, QD
     Route: 041
     Dates: start: 20250816, end: 20250817

REACTIONS (8)
  - Loss of consciousness [Recovered/Resolved]
  - Tetany [Recovering/Resolving]
  - Urinary incontinence [Recovering/Resolving]
  - Cyanosis [Recovering/Resolving]
  - Heart rate increased [Recovering/Resolving]
  - Blood pressure immeasurable [Recovering/Resolving]
  - Trismus [Recovering/Resolving]
  - Oxygen saturation decreased [Recovering/Resolving]

NARRATIVE: CASE EVENT DATE: 20250817
